FAERS Safety Report 11796328 (Version 1)
Quarter: 2015Q4

REPORT INFORMATION
  Report Type: Spontaneous
  Country: US (occurrence: US)
  Receive Date: 20151203
  Receipt Date: 20151203
  Transmission Date: 20160305
  Serious: No
  Sender: FDA-Public Use
  Company Number: US-PFIZER INC-2015406254

PATIENT
  Age: 49 Year
  Sex: Male
  Weight: 86 kg

DRUGS (1)
  1. VIAGRA [Suspect]
     Active Substance: SILDENAFIL CITRATE
     Indication: ERECTILE DYSFUNCTION
     Dosage: 2 DF, DAILY
     Route: 048
     Dates: start: 20151113

REACTIONS (3)
  - Spontaneous ejaculation [Unknown]
  - Sleep disorder [Not Recovered/Not Resolved]
  - Spontaneous penile erection [Not Recovered/Not Resolved]

NARRATIVE: CASE EVENT DATE: 20151115
